FAERS Safety Report 5818790-X (Version None)
Quarter: 2008Q3

REPORT INFORMATION
  Report Type: 
  Country: None (occurrence: None)
  Receive Date: 20080721
  Receipt Date: 20080721
  Transmission Date: 20090109
  Serious: No
  Sender: FDA-Public Use
  Company Number: None

PATIENT
  Age: 65 Year
  Sex: Female
  Weight: 65.7716 kg

DRUGS (1)
  1. HYDROXYCHLOROQUINE 200MG TEVA USA [Suspect]
     Indication: RHEUMATOID ARTHRITIS
     Dosage: 200 MG 2X/DAY PO
     Route: 048
     Dates: start: 20080319, end: 20080705

REACTIONS (5)
  - DISEASE RECURRENCE [None]
  - PHARMACEUTICAL PRODUCT COMPLAINT [None]
  - POOR QUALITY DRUG ADMINISTERED [None]
  - RHEUMATOID ARTHRITIS [None]
  - TRICHORRHEXIS [None]
